FAERS Safety Report 7443873-0 (Version None)
Quarter: 2011Q2

REPORT INFORMATION
  Report Type: 
  Country: None (occurrence: None)
  Receive Date: 20110428
  Receipt Date: 20100914
  Transmission Date: 20111010
  Serious: Yes (Hospitalization)
  Sender: FDA-Public Use
  Company Number: US-BAYER-201030026NA

PATIENT
  Age: 43 Year
  Sex: Female
  Weight: 84.807 kg

DRUGS (7)
  1. ZOFRAN [Concomitant]
  2. FLAGYL [Concomitant]
  3. NAPROXEN [Concomitant]
  4. ROCEPHIN [Concomitant]
  5. YAZ [Suspect]
     Dosage: UNK
     Dates: start: 20050101, end: 20080101
  6. IBUPROFEN [Concomitant]
  7. PREVACID [Concomitant]

REACTIONS (2)
  - INJURY [None]
  - CHOLECYSTITIS CHRONIC [None]
